APPROVED DRUG PRODUCT: CALCIUM ACETATE
Active Ingredient: CALCIUM ACETATE
Strength: 667MG
Dosage Form/Route: TABLET;ORAL
Application: A202420 | Product #001 | TE Code: AB
Applicant: CHARTWELL MOLECULAR HOLDINGS LLC
Approved: Feb 5, 2013 | RLD: No | RS: Yes | Type: RX